FAERS Safety Report 5763988-2 (Version None)
Quarter: 2008Q2

REPORT INFORMATION
  Report Type: 
  Country: None (occurrence: None)
  Receive Date: 20080604
  Receipt Date: 20080604
  Transmission Date: 20081010
  Serious: No
  Sender: FDA-Public Use
  Company Number: None

PATIENT
  Age: 73 Year
  Sex: Male
  Weight: 88.8 kg

DRUGS (1)
  1. EZETIMIBE [Suspect]
     Indication: HYPERLIPIDAEMIA
     Dosage: 5 MG EVERY DAY PO
     Route: 048
     Dates: start: 20071104, end: 20071130

REACTIONS (2)
  - RASH [None]
  - SKIN BURNING SENSATION [None]
